FAERS Safety Report 25312607 (Version 1)
Quarter: 2025Q2

REPORT INFORMATION
  Report Type: Spontaneous
  Country: IT (occurrence: IT)
  Receive Date: 20250514
  Receipt Date: 20250514
  Transmission Date: 20250716
  Serious: Yes (Hospitalization)
  Sender: PFIZER
  Company Number: IT-PFIZER INC-202500099068

PATIENT
  Sex: Male

DRUGS (1)
  1. ELRANATAMAB [Suspect]
     Active Substance: ELRANATAMAB
     Dates: start: 202505

REACTIONS (3)
  - Loss of consciousness [Unknown]
  - Ataxia [Unknown]
  - Aphasia [Unknown]

NARRATIVE: CASE EVENT DATE: 20250501
